FAERS Safety Report 5807332-0 (Version None)
Quarter: 2008Q3

REPORT INFORMATION
  Report Type: 
  Country: None (occurrence: None)
  Receive Date: 20080711
  Receipt Date: 20080630
  Transmission Date: 20090109
  Serious: Yes (Hospitalization, Other)
  Sender: FDA-Public Use
  Company Number: CH-ELI_LILLY_AND_COMPANY-CH200807000883

PATIENT
  Age: 57 Year
  Sex: Female

DRUGS (2)
  1. GEMCITABINE HCL [Suspect]
     Indication: OVARIAN EPITHELIAL CANCER
     Dosage: 600 MG/M2  I.E. 1 G/TREATMENT
     Route: 065
     Dates: start: 20050901
  2. CARBOPLATIN [Concomitant]
     Indication: OVARIAN EPITHELIAL CANCER
     Dosage: UNK, UNKNOWN
     Route: 065

REACTIONS (8)
  - EPISTAXIS [None]
  - GENERAL PHYSICAL HEALTH DETERIORATION [None]
  - HAEMOLYTIC URAEMIC SYNDROME [None]
  - HYPERTENSION [None]
  - OEDEMA PERIPHERAL [None]
  - PANCYTOPENIA [None]
  - RALES [None]
  - RENAL FAILURE ACUTE [None]
